FAERS Safety Report 23953129 (Version 4)
Quarter: 2025Q2

REPORT INFORMATION
  Report Type: Spontaneous
  Country: US (occurrence: US)
  Receive Date: 20240608
  Receipt Date: 20250404
  Transmission Date: 20250716
  Serious: Yes (Hospitalization, Disabling, Other)
  Sender: AMGEN
  Company Number: US-AMGEN-USASP2024108608

PATIENT
  Age: 79 Year
  Sex: Female
  Weight: 102 kg

DRUGS (29)
  1. TEPEZZA [Suspect]
     Active Substance: TEPROTUMUMAB-TRBW
     Indication: Graves^ disease
     Dosage: 1000 MILLIGRAM 2 (500 MILLIGRAM) VIALS, Q3WK (FIRST INFUSION)
     Route: 042
     Dates: start: 20220304
  2. TEPEZZA [Suspect]
     Active Substance: TEPROTUMUMAB-TRBW
     Indication: Endocrine ophthalmopathy
     Dosage: 2000 MILLIGRAM (4 (500 MILLIGRAM) VIALS), Q3WK (SECOND INFUSION)
     Route: 042
     Dates: start: 20220325
  3. TEPEZZA [Suspect]
     Active Substance: TEPROTUMUMAB-TRBW
     Dosage: 1980 MILLIGRAM (4 (500 MILLIGRAM) VIALS), Q3WK (THIRD INFUSION)
     Route: 042
     Dates: start: 20220415
  4. TEPEZZA [Suspect]
     Active Substance: TEPROTUMUMAB-TRBW
     Dosage: 1920 MILLIGRAM (4 (500 MILLIGRAM) VIALS), Q3WK (FOURTH INFUSION)
     Route: 042
     Dates: start: 20220506
  5. TEPEZZA [Suspect]
     Active Substance: TEPROTUMUMAB-TRBW
     Dosage: 1890 MILLIGRAM (4 (500 MILLIGRAM) VIALS), Q3WK (FIFTH INFUSION)
     Route: 042
     Dates: start: 20220527
  6. METFORMIN [Concomitant]
     Active Substance: METFORMIN HYDROCHLORIDE
     Indication: Diabetes mellitus
     Route: 065
     Dates: start: 2022
  7. SODIUM CHLORIDE [Concomitant]
     Active Substance: SODIUM CHLORIDE
     Route: 042
     Dates: start: 20220304
  8. SODIUM CHLORIDE [Concomitant]
     Active Substance: SODIUM CHLORIDE
     Route: 042
     Dates: start: 20220325
  9. SODIUM CHLORIDE [Concomitant]
     Active Substance: SODIUM CHLORIDE
     Route: 042
     Dates: start: 20220415
  10. SODIUM CHLORIDE [Concomitant]
     Active Substance: SODIUM CHLORIDE
     Route: 042
     Dates: start: 20220506
  11. SODIUM CHLORIDE [Concomitant]
     Active Substance: SODIUM CHLORIDE
     Route: 042
     Dates: start: 20220527
  12. BOTOX [Concomitant]
     Active Substance: ONABOTULINUMTOXINA
  13. DIOVAN HCT [Concomitant]
     Active Substance: HYDROCHLOROTHIAZIDE\VALSARTAN
     Dosage: 92.5 MILLIGRAM, QD (12.5/80 MG)
     Route: 048
     Dates: start: 20210930
  14. BUDEPRION [Concomitant]
     Active Substance: BUPROPION HYDROCHLORIDE
     Dosage: 150 MILLIGRAM, QD (EXTENDED RELEASE TABLET)
     Route: 065
     Dates: start: 20170803
  15. CARBOXYMETHYLCELLULOSE [Concomitant]
     Active Substance: CARBOXYMETHYLCELLULOSE
     Route: 065
     Dates: start: 20210930
  16. HYPROMELLOSES [Concomitant]
     Active Substance: HYPROMELLOSES
     Dosage: 3 MILLIGRAM PER MILLILITRE, QHS (OPHTHALMIC SOLUTION GENERAL GEL DROPS)
     Dates: start: 20210930
  17. Artificial tears [Concomitant]
     Route: 047
     Dates: start: 20210930
  18. Artificial tears [Concomitant]
     Route: 065
  19. DESONIDE [Concomitant]
     Active Substance: DESONIDE
     Route: 061
  20. ALLOPURINOL [Concomitant]
     Active Substance: ALLOPURINOL
     Route: 048
  21. BUPROPION HYDROCHLORIDE [Concomitant]
     Active Substance: BUPROPION HYDROCHLORIDE
     Route: 048
  22. METOPROLOL SUCCINATE [Concomitant]
     Active Substance: METOPROLOL SUCCINATE
     Route: 048
  23. VALSARTAN [Concomitant]
     Active Substance: VALSARTAN
     Route: 048
  24. ZOLPIDEM [Concomitant]
     Active Substance: ZOLPIDEM TARTRATE
     Route: 048
  25. MOUNJARO [Concomitant]
     Active Substance: TIRZEPATIDE
     Route: 058
  26. COVID-19 vaccine [Concomitant]
     Route: 065
  27. GENTEAL MODERATE TO SEVERE GEL DROPS [Concomitant]
     Active Substance: CARBOXYMETHYLCELLULOSE SODIUM\HYPROMELLOSES
     Dosage: UNK UNK, QHS
     Route: 047
  28. SYNTHROID [Concomitant]
     Active Substance: LEVOTHYROXINE SODIUM
     Route: 048
  29. TOPROL XL [Concomitant]
     Active Substance: METOPROLOL SUCCINATE
     Dosage: 25 MILLIGRAM, QD
     Route: 065

REACTIONS (18)
  - Deafness neurosensory [Not Recovered/Not Resolved]
  - Physical disability [Unknown]
  - Endocrine ophthalmopathy [Unknown]
  - Graves^ disease [Unknown]
  - Atrial fibrillation [Recovered/Resolved]
  - Diabetes mellitus [Recovered/Resolved]
  - Glaucoma [Unknown]
  - Pain [Unknown]
  - Anxiety [Unknown]
  - Impaired quality of life [Not Recovered/Not Resolved]
  - Discomfort [Unknown]
  - Emotional distress [Unknown]
  - Physical product label issue [Unknown]
  - Gout [Unknown]
  - Blood pressure increased [Unknown]
  - Heart rate decreased [Unknown]
  - Visual impairment [Unknown]
  - Tinnitus [Not Recovered/Not Resolved]

NARRATIVE: CASE EVENT DATE: 20220101
